FAERS Safety Report 24174801 (Version 1)
Quarter: 2024Q3

REPORT INFORMATION
  Report Type: Spontaneous
  Country: CN (occurrence: CN)
  Receive Date: 20240805
  Receipt Date: 20240805
  Transmission Date: 20241017
  Serious: Yes (Other)
  Sender: IPSEN
  Company Number: None

PATIENT
  Age: 78 Year
  Sex: Male
  Weight: 44 kg

DRUGS (4)
  1. IRINOTECAN HYDROCHLORIDE [Suspect]
     Active Substance: IRINOTECAN HYDROCHLORIDE
     Indication: Pancreatic carcinoma
     Dosage: 86 MG, EVERY 3 WEEKS
     Route: 042
     Dates: start: 20240621, end: 20240621
  2. OXALIPLATIN [Suspect]
     Active Substance: OXALIPLATIN
     Indication: Pancreatic carcinoma
     Dosage: 150 MG, EVERY 3 WEEKS
     Route: 042
     Dates: start: 20240621, end: 20240621
  3. GIMERACIL\OTERACIL\TEGAFUR [Suspect]
     Active Substance: GIMERACIL\OTERACIL POTASSIUM\TEGAFUR
     Indication: Pancreatic carcinoma
     Dosage: 40 MG, BID
     Route: 048
     Dates: start: 20240621, end: 20240703
  4. TORIPALIMAB [Concomitant]
     Active Substance: TORIPALIMAB
     Indication: Pancreatic carcinoma
     Dosage: 200 MG, EVERY 3 WEEKS
     Route: 042
     Dates: start: 20240621, end: 20240621

REACTIONS (1)
  - Myelosuppression [Recovering/Resolving]

NARRATIVE: CASE EVENT DATE: 20240709
